FAERS Safety Report 20106914 (Version 34)
Quarter: 2023Q2

REPORT INFORMATION
  Report Type: Report from Study
  Country: CO (occurrence: CO)
  Receive Date: 20211124
  Receipt Date: 20230627
  Transmission Date: 20230721
  Serious: Yes (Other)
  Sender: FDA-Public Use
  Company Number: CO-TAKEDA-2021TUS048544

PATIENT
  Age: 60 Year
  Sex: Female
  Weight: 58 kg

DRUGS (8)
  1. ICATIBANT [Suspect]
     Active Substance: ICATIBANT ACETATE
     Indication: Hereditary angioedema
     Dosage: 1 DOSAGE FORM, Q6HR
     Route: 058
     Dates: start: 20180908
  2. ICATIBANT [Suspect]
     Active Substance: ICATIBANT ACETATE
     Indication: Hereditary angioedema
     Dosage: 1 DOSAGE FORM, Q6HR
     Route: 058
     Dates: start: 20180908
  3. ICATIBANT [Suspect]
     Active Substance: ICATIBANT ACETATE
     Dosage: UNK
     Route: 058
  4. ICATIBANT [Suspect]
     Active Substance: ICATIBANT ACETATE
     Dosage: UNK
     Route: 058
  5. ICATIBANT [Suspect]
     Active Substance: ICATIBANT ACETATE
     Dosage: 1 DOSAGE FORM
     Route: 058
  6. ICATIBANT [Suspect]
     Active Substance: ICATIBANT ACETATE
     Dosage: 1 DOSAGE FORM
     Route: 058
  7. CARBAMAZEPINE [Concomitant]
     Active Substance: CARBAMAZEPINE
     Dosage: UNK
     Route: 065
  8. Covid-19 vaccine [Concomitant]
     Indication: COVID-19 immunisation
     Dosage: UNK
     Route: 065
     Dates: start: 20220323

REACTIONS (18)
  - Cyst [Recovering/Resolving]
  - Gingival cyst [Recovering/Resolving]
  - Treatment noncompliance [Unknown]
  - Mouth haemorrhage [Unknown]
  - Weight decreased [Unknown]
  - Speech disorder [Recovering/Resolving]
  - Procedural pain [Recovering/Resolving]
  - Procedural anxiety [Unknown]
  - Abdominal pain upper [Unknown]
  - Influenza [Recovered/Resolved]
  - Depressed mood [Recovered/Resolved]
  - Crying [Unknown]
  - Medical device site discomfort [Unknown]
  - Oral discomfort [Unknown]
  - Post procedural complication [Not Recovered/Not Resolved]
  - Anxiety [Recovered/Resolved]
  - Feeding disorder [Unknown]
  - Product prescribing error [Unknown]

NARRATIVE: CASE EVENT DATE: 20211111
